FAERS Safety Report 25660529 (Version 2)
Quarter: 2025Q4

REPORT INFORMATION
  Report Type: Spontaneous
  Country: EU (occurrence: EU)
  Receive Date: 20250808
  Receipt Date: 20251010
  Transmission Date: 20260118
  Serious: Yes (Hospitalization, Other)
  Sender: FERRING
  Company Number: None

PATIENT

DRUGS (9)
  1. FIRMAGON [Suspect]
     Active Substance: DEGARELIX ACETATE
     Indication: Prostate cancer
     Dosage: 120 MG (FIRST INJECTION)
     Route: 058
     Dates: start: 20250316, end: 20250316
  2. FIRMAGON [Suspect]
     Active Substance: DEGARELIX ACETATE
     Dosage: 80 MG, MONTHLY (FOR 3 MONTHS)
     Route: 058
     Dates: start: 20250416, end: 20250616
  3. ALFUZOSIN [Suspect]
     Active Substance: ALFUZOSIN
     Indication: Product used for unknown indication
     Dosage: 10 MG
     Route: 065
     Dates: start: 20250317
  4. METFORMIN [Concomitant]
     Active Substance: METFORMIN HYDROCHLORIDE
     Dosage: 500 MG, 1 TIME DAILY [1-0-0]
     Route: 065
  5. FLUTICASONE FUROATE\UMECLIDINIUM BROMIDE\VILANTEROL TRIFENATATE [Concomitant]
     Active Substance: FLUTICASONE FUROATE\UMECLIDINIUM BROMIDE\VILANTEROL TRIFENATATE
     Dosage: UNK, 1 TIME DAILY [1-0-0]
     Route: 065
  6. DILTIAZEM [Concomitant]
     Active Substance: DILTIAZEM
     Dosage: 200 MG, 1 TIME DAILY [1-0-0]
     Route: 065
  7. PANTOPRAZOLE [Concomitant]
     Active Substance: PANTOPRAZOLE
     Dosage: 40 MG, 1 TIME DAILY [0-0-1]
     Route: 065
  8. ZOPICLONE [Concomitant]
     Active Substance: ZOPICLONE
     Dosage: 7.5 MG, 1 TIME DAILY [0-0-1]
     Route: 065
  9. OXAZEPAM [Concomitant]
     Active Substance: OXAZEPAM
     Dosage: 10 MG, 1 TIME DAILY [0-0-1]
     Route: 065

REACTIONS (5)
  - Toxic skin eruption [Unknown]
  - Non-pitting oedema [Recovered/Resolved]
  - Rash erythematous [Recovering/Resolving]
  - Eosinophilia [Recovered/Resolved]
  - Product use issue [Unknown]

NARRATIVE: CASE EVENT DATE: 20250316
